FAERS Safety Report 13239235 (Version 1)
Quarter: 2017Q1

REPORT INFORMATION
  Report Type: Spontaneous
  Country: US (occurrence: US)
  Receive Date: 20170216
  Receipt Date: 20170216
  Transmission Date: 20170428
  Serious: Yes (Other)
  Sender: FDA-Public Use
  Company Number: US-AMGEN-USASP2017022297

PATIENT
  Age: 65 Year
  Sex: Female

DRUGS (3)
  1. ARANESP [Suspect]
     Active Substance: DARBEPOETIN ALFA
     Indication: ANAEMIA
     Dosage: 500 MUG, Q3WK
     Route: 065
     Dates: start: 20160901, end: 20161228
  2. CYTOXAN [Concomitant]
     Active Substance: CYCLOPHOSPHAMIDE
     Indication: OVARIAN CANCER METASTATIC
     Dosage: UNK
     Dates: start: 201606, end: 201612
  3. AVASTIN [Concomitant]
     Active Substance: BEVACIZUMAB
     Dosage: UNK

REACTIONS (4)
  - Drug dose omission [Unknown]
  - Drug effect incomplete [Unknown]
  - Myelodysplastic syndrome [Unknown]
  - Blood erythropoietin abnormal [Not Recovered/Not Resolved]

NARRATIVE: CASE EVENT DATE: 201611
